FAERS Safety Report 4941462-0 (Version None)
Quarter: 2006Q1

REPORT INFORMATION
  Report Type: 
  Country: None (occurrence: None)
  Receive Date: 20060313
  Receipt Date: 20060109
  Transmission Date: 20060701
  Serious: Yes (Life-Threatening, Hospitalization)
  Sender: FDA-Public Use
  Company Number: DE-MERCK-0601DEU00037

PATIENT
  Age: 74 Year
  Sex: Male
  Weight: 85 kg

DRUGS (8)
  1. VIOXX [Suspect]
     Indication: POLYARTHRITIS
     Route: 048
     Dates: start: 20010801, end: 20041006
  2. VIOXX [Suspect]
     Indication: KNEE OPERATION
     Route: 048
     Dates: start: 20010801, end: 20041006
  3. ETORICOXIB [Concomitant]
     Route: 048
     Dates: start: 20041001, end: 20051030
  4. METHOTREXATE SODIUM [Concomitant]
     Route: 065
  5. METHYLPREDNISOLONE [Concomitant]
     Route: 065
     Dates: start: 20010101
  6. SIMVASTATIN [Concomitant]
     Indication: HYPERCHOLESTEROLAEMIA
     Route: 065
  7. HYDROCHLOROTHIAZIDE AND LOSARTAN POTASSIUM [Concomitant]
     Route: 065
  8. GINKGO [Concomitant]
     Route: 065

REACTIONS (12)
  - AORTIC ARTERIOSCLEROSIS [None]
  - AORTIC VALVE INCOMPETENCE [None]
  - BENIGN PROSTATIC HYPERPLASIA [None]
  - CHEST DISCOMFORT [None]
  - CORONARY ARTERY DISEASE [None]
  - DIARRHOEA [None]
  - HEPATIC STEATOSIS [None]
  - HYPERTENSION [None]
  - MITRAL VALVE INCOMPETENCE [None]
  - MYOCARDIAL INFARCTION [None]
  - PANCREAS LIPOMATOSIS [None]
  - RENAL CYST [None]
